FAERS Safety Report 12562905 (Version 1)
Quarter: 2016Q3

REPORT INFORMATION
  Report Type: Report from Study
  Country: US (occurrence: US)
  Receive Date: 20160715
  Receipt Date: 20160715
  Transmission Date: 20161109
  Serious: Yes (Hospitalization, Other)
  Sender: FDA-Public Use
  Company Number: US-GILEAD-2016-0222753

PATIENT
  Age: 67 Year
  Sex: Female

DRUGS (1)
  1. LEDIPASVIR/SOFOSBUVIR [Suspect]
     Active Substance: LEDIPASVIR\SOFOSBUVIR
     Indication: CHRONIC HEPATITIS C
     Dosage: 1 DF, UNK
     Route: 048
     Dates: start: 20160413

REACTIONS (7)
  - Confusional state [Unknown]
  - Asthenia [Unknown]
  - Hepatitis [Unknown]
  - Coma [Not Recovered/Not Resolved]
  - Nephritis [Unknown]
  - Fatigue [Unknown]
  - Renal disorder [Unknown]

NARRATIVE: CASE EVENT DATE: 2016
